FAERS Safety Report 7295977-3 (Version None)
Quarter: 2011Q1

REPORT INFORMATION
  Report Type: 
  Country: None (occurrence: None)
  Receive Date: 20110216
  Receipt Date: 20110210
  Transmission Date: 20110831
  Serious: Yes (Other)
  Sender: FDA-Public Use
  Company Number: US-ROCHE-735300

PATIENT
  Sex: Male
  Weight: 88.5 kg

DRUGS (1)
  1. ACCUTANE [Suspect]
     Indication: ACNE
     Route: 065
     Dates: start: 19910101, end: 19931231

REACTIONS (4)
  - POLYP [None]
  - IRRITABLE BOWEL SYNDROME [None]
  - GASTROINTESTINAL INJURY [None]
  - CROHN'S DISEASE [None]
